FAERS Safety Report 13399679 (Version 3)
Quarter: 2017Q3

REPORT INFORMATION
  Report Type: Report from Study
  Country: DE (occurrence: DE)
  Receive Date: 20170404
  Receipt Date: 20170817
  Transmission Date: 20171127
  Serious: Yes (Death, Life-Threatening, Hospitalization, Disabling)
  Sender: FDA-Public Use
  Company Number: DE-ROCHE-1843945

PATIENT
  Age: 56 Year
  Sex: Male
  Weight: 70 kg

DRUGS (11)
  1. TRASTUZUMAB. [Suspect]
     Active Substance: TRASTUZUMAB
     Dosage: MAINTAINANCE DOSE
     Route: 042
  2. CISPLATIN. [Suspect]
     Active Substance: CISPLATIN
     Indication: HER-2 POSITIVE GASTRIC CANCER
     Route: 042
     Dates: start: 20161013
  3. FLUOROURACIL. [Suspect]
     Active Substance: FLUOROURACIL
     Dosage: MOST RECENT DOSE ADMINITERED PRIOR TO ADVERSE EVENT: 10/NOV/2016.
     Route: 042
  4. TRASTUZUMAB. [Suspect]
     Active Substance: TRASTUZUMAB
     Indication: HER-2 POSITIVE GASTRIC CANCER
     Dosage: LOADING DOSE
     Route: 042
     Dates: start: 20161010
  5. PERTUZUMAB. [Suspect]
     Active Substance: PERTUZUMAB
     Indication: HER-2 POSITIVE GASTRIC CANCER
     Dosage: DATE OF MOST RECENT DOSE PRIOR TO SAE: 18/JAN/2017
     Route: 042
     Dates: start: 20161010
  6. FLUOROURACIL. [Suspect]
     Active Substance: FLUOROURACIL
     Dosage: DATE OF MSOT RECENT DOSE PRIOR TO SAE: 18/JAN/2017
     Route: 042
  7. CISPLATIN. [Suspect]
     Active Substance: CISPLATIN
     Dosage: DATE OF MSOT RECENT DOSE PRIOR TO SAE: 18/JAN/2017
     Route: 042
  8. TRASTUZUMAB. [Suspect]
     Active Substance: TRASTUZUMAB
     Dosage: MAINTENANCE DOSE?MOST RECENT DOSE ADMINITERED PRIOR TO ADVERSE EVENT: 10/NOV/2016.
     Route: 042
  9. CISPLATIN. [Suspect]
     Active Substance: CISPLATIN
     Dosage: MOST RECENT DOSE ADMINITERED PRIOR TO ADVERSE EVENT: 10/NOV/2016.
     Route: 042
  10. TRASTUZUMAB. [Suspect]
     Active Substance: TRASTUZUMAB
     Dosage: MOST RECEENT DOSE PRIOR TO SAE: 18/JAN/2017
     Route: 042
  11. FLUOROURACIL. [Suspect]
     Active Substance: FLUOROURACIL
     Indication: HER-2 POSITIVE GASTRIC CANCER
     Dosage: DATE OF MOST RECENT DOSE PRIOR TO SAE: 17/OCT/2016
     Route: 042
     Dates: start: 20161013

REACTIONS (5)
  - Anaemia [Not Recovered/Not Resolved]
  - Vomiting [Recovered/Resolved]
  - Upper gastrointestinal haemorrhage [Recovered/Resolved]
  - Metastases to central nervous system [Fatal]
  - Neurological symptom [Recovered/Resolved with Sequelae]

NARRATIVE: CASE EVENT DATE: 20161017
